FAERS Safety Report 6035997-X (Version None)
Quarter: 2009Q1

REPORT INFORMATION
  Report Type: 
  Country: None (occurrence: None)
  Receive Date: 20090113
  Receipt Date: 20090108
  Transmission Date: 20090719
  Serious: No
  Sender: FDA-Public Use
  Company Number: US-JNJFOC-20090101677

PATIENT
  Sex: Female
  Weight: 86.18 kg

DRUGS (17)
  1. FENTANYL TRANSDERMAL SYSTEM [Suspect]
     Indication: FIBROMYALGIA
     Route: 062
  2. FENTANYL TRANSDERMAL SYSTEM [Suspect]
     Indication: ARTHRITIS
     Route: 062
  3. FENTANYL TRANSDERMAL SYSTEM [Suspect]
     Indication: FIBROMYALGIA
     Route: 062
  4. FENTANYL TRANSDERMAL SYSTEM [Suspect]
     Indication: ARTHRITIS
     Route: 062
  5. XANAX [Concomitant]
     Indication: ANXIETY
     Dosage: EVERY 4 TO 6 HOURS
     Route: 048
  6. KLONOPIN [Concomitant]
     Route: 048
  7. ZETIA [Concomitant]
     Indication: BLOOD CHOLESTEROL INCREASED
     Route: 048
  8. WATER PILL [Concomitant]
     Indication: FLUID RETENTION
     Route: 048
  9. LYRICA [Concomitant]
     Indication: MYALGIA
     Route: 048
  10. DICLOFENAC SODIUM [Concomitant]
     Indication: ARTHRITIS
     Route: 048
  11. PREVACID [Concomitant]
     Indication: HYPERCHLORHYDRIA
     Route: 048
  12. VOLTAREN [Concomitant]
     Indication: ARTHRITIS
     Route: 061
  13. LIDODERM [Concomitant]
     Indication: ARTHRITIS
     Dosage: USE AS NEEDED
     Route: 061
  14. CALCIUM [Concomitant]
     Indication: ARTHRITIS
     Route: 048
  15. VITAMIN D [Concomitant]
     Indication: ARTHRITIS
     Route: 048
  16. CELEXA [Concomitant]
     Indication: ANXIETY
     Route: 048
  17. POTASSIUM REPLACEMENT [Concomitant]
     Indication: ELECTROLYTE SUBSTITUTION THERAPY
     Route: 048

REACTIONS (5)
  - DRUG ADMINISTERED AT INAPPROPRIATE SITE [None]
  - INADEQUATE ANALGESIA [None]
  - SOMNOLENCE [None]
  - WEIGHT DECREASED [None]
  - WRONG TECHNIQUE IN DRUG USAGE PROCESS [None]
